FAERS Safety Report 5710882-9 (Version None)
Quarter: 2008Q2

REPORT INFORMATION
  Report Type: 
  Country: None (occurrence: None)
  Receive Date: 20080421
  Receipt Date: 20080414
  Transmission Date: 20081010
  Serious: Yes (Hospitalization, Other)
  Sender: FDA-Public Use
  Company Number: PHRM2008FR01298

PATIENT
  Age: 60 Year
  Sex: Female

DRUGS (2)
  1. ESTRADERM [Suspect]
     Route: 062
     Dates: end: 20071101
  2. LUTENYL [Suspect]
     Route: 048
     Dates: end: 20071101

REACTIONS (9)
  - ATRIAL SEPTAL DEFECT [None]
  - CARDIAC ANEURYSM [None]
  - CARDIOLIPIN ANTIBODY POSITIVE [None]
  - DYSARTHRIA [None]
  - FACIAL PARESIS [None]
  - MONOPARESIS [None]
  - PARAESTHESIA [None]
  - SUPRAVENTRICULAR EXTRASYSTOLES [None]
  - TRANSIENT ISCHAEMIC ATTACK [None]
